FAERS Safety Report 9820092 (Version 1)
Quarter: 2013Q4

REPORT INFORMATION
  Report Type: Spontaneous
  Country: US (occurrence: None)
  Receive Date: 20131223
  Receipt Date: 20131223
  Transmission Date: 20140711
  Serious: Yes (Other)
  Sender: FDA-Public Use
  Company Number: 221303

PATIENT
  Age: 61 Year
  Sex: Female

DRUGS (4)
  1. PICATO [Suspect]
     Indication: PRECANCEROUS CELLS PRESENT
     Dosage: (1 TUBE DAILY FOR 3 DAYS), TOPICAL
     Route: 061
     Dates: start: 20130412, end: 20130414
  2. MULTIPLE VITAMIN (VITAMINS NOS) (TABLET) [Concomitant]
  3. CALCIUM SUPPLEMENT CALCIUM) (TABLET) [Concomitant]
  4. VITAMIN D (VITAMIN D NOS) (TABLET) [Concomitant]

REACTIONS (5)
  - Application site discharge [None]
  - Application site vesicles [None]
  - Application site pain [None]
  - Application site pain [None]
  - Application site exfoliation [None]
